FAERS Safety Report 9680300 (Version 2)
Quarter: 2014Q1

REPORT INFORMATION
  Report Type: Spontaneous
  Country: CO (occurrence: CO)
  Receive Date: 20131111
  Receipt Date: 20140130
  Transmission Date: 20141002
  Serious: Yes (Hospitalization, Other)
  Sender: FDA-Public Use
  Company Number: CO-AMGEN-COLSP2013078915

PATIENT
  Age: 47 Year
  Sex: Male

DRUGS (6)
  1. ENBREL [Suspect]
     Indication: ANKYLOSING SPONDYLITIS
     Dosage: 50 MG, WEEKLY
     Route: 058
     Dates: start: 2005, end: 2013
  2. ENBREL [Suspect]
     Indication: RHEUMATOID ARTHRITIS
     Dosage: 50 MG, WEEKLY
     Route: 058
     Dates: start: 2013
  3. ARAVA [Concomitant]
     Indication: ANKYLOSING SPONDYLITIS
     Dosage: 20 MG, 1X/DAY
     Route: 048
     Dates: start: 2010
  4. LOSARTAN [Concomitant]
     Indication: HYPERTENSION
     Dosage: 50 MG, 2X/DAY
     Route: 048
     Dates: start: 2009
  5. HYDROCHLOROTHIAZIDE [Concomitant]
     Indication: HYPERTENSION
     Dosage: 12.5 MG, HALF TABLET DAILY
     Route: 048
     Dates: start: 2009
  6. NAPROXEN [Concomitant]
     Indication: ANKYLOSING SPONDYLITIS
     Dosage: 500 MG, 2X/DAY
     Route: 048
     Dates: start: 20130916

REACTIONS (10)
  - Abdominal pain [Recovered/Resolved]
  - Gallbladder disorder [Recovered/Resolved]
  - Cholelithiasis [Recovered/Resolved]
  - Cough [Recovered/Resolved]
  - Joint swelling [Recovering/Resolving]
  - Local swelling [Recovering/Resolving]
  - Cardiovascular disorder [Recovering/Resolving]
  - Red blood cell sedimentation rate increased [Not Recovered/Not Resolved]
  - Bronchopneumonia [Recovered/Resolved]
  - Influenza [Not Recovered/Not Resolved]
